FAERS Safety Report 6143795-1 (Version None)
Quarter: 2009Q2

REPORT INFORMATION
  Report Type: 
  Country: None (occurrence: None)
  Receive Date: 20090403
  Receipt Date: 20090327
  Transmission Date: 20091009
  Serious: Yes (Other)
  Sender: FDA-Public Use
  Company Number: PHHY2009JP10014

PATIENT
  Age: 16 Year
  Sex: Male

DRUGS (10)
  1. CYCLOSPORINE [Suspect]
     Indication: BONE MARROW TRANSPLANT
     Dosage: 3 MG/KG/DAY
  2. CYCLOSPORINE [Suspect]
     Indication: PROPHYLAXIS AGAINST GRAFT VERSUS HOST DISEASE
  3. METHOTREXATE [Concomitant]
     Indication: BONE MARROW TRANSPLANT
     Dosage: 10 MG/M2, ONCE/SINGLE
  4. METHOTREXATE [Concomitant]
     Indication: PROPHYLAXIS AGAINST GRAFT VERSUS HOST DISEASE
     Dosage: 10 MG/M2, ONCE/SINGLE
  5. CYTARABINE [Concomitant]
     Indication: BONE MARROW TRANSPLANT
     Dosage: 2 G/M2/TIME BID
  6. CYTARABINE [Concomitant]
     Dosage: 2 G/M2/TIME BID
  7. CYCLOPHOSPHAMIDE [Concomitant]
     Indication: BONE MARROW TRANSPLANT
     Dosage: 60 MG/KG, ONCE/SINGLE
  8. CYCLOPHOSPHAMIDE [Concomitant]
     Dosage: 60 MG/KG, ONCE/SINGLE
  9. IRRADIATION [Concomitant]
     Dosage: 4 GY, ONCE/SINGLE
  10. IRRADIATION [Concomitant]
     Dosage: 4 GY, ONCE/SINGLE

REACTIONS (2)
  - LIVER INJURY [None]
  - SWOLLEN TONGUE [None]
